FAERS Safety Report 7153507-0 (Version None)
Quarter: 2010Q4

REPORT INFORMATION
  Report Type: 
  Country: None (occurrence: None)
  Receive Date: 20101213
  Receipt Date: 20101202
  Transmission Date: 20110411
  Serious: Yes (Other)
  Sender: FDA-Public Use
  Company Number: B0688439A

PATIENT
  Sex: Female

DRUGS (1)
  1. VENTOLIN [Suspect]
     Route: 065

REACTIONS (2)
  - BORDERLINE GLAUCOMA [None]
  - INTRAOCULAR PRESSURE INCREASED [None]
